FAERS Safety Report 7118477-X (Version None)
Quarter: 2010Q4

REPORT INFORMATION
  Report Type: 
  Country: None (occurrence: None)
  Receive Date: 20101123
  Receipt Date: 20101115
  Transmission Date: 20110411
  Serious: Yes (Hospitalization, Other)
  Sender: FDA-Public Use
  Company Number: JP-MPIJNJ-2010-01705

PATIENT

DRUGS (12)
  1. VELCADE [Suspect]
     Indication: MULTIPLE MYELOMA
     Dosage: 2.2 MG, UNK
     Route: 042
     Dates: start: 20090910, end: 20100225
  2. DEXAMETHASONE [Concomitant]
     Dosage: UNK
     Dates: start: 20090610, end: 20091025
  3. MELPHALAN HYDROCHLORIDE [Concomitant]
     Dosage: UNK
     Dates: start: 20090610, end: 20091025
  4. PREDNISOLONE [Concomitant]
     Dosage: UNK
     Dates: start: 20090610, end: 20091025
  5. MAGNESIUM OXIDE [Concomitant]
     Indication: CONSTIPATION
     Dosage: 2 G, UNK
     Route: 048
     Dates: start: 20090610
  6. DIFLUCAN [Concomitant]
     Indication: ANTIFUNGAL PROPHYLAXIS
     Dosage: 200 MG, UNK
     Route: 048
     Dates: start: 20090610, end: 20090916
  7. MUCOSTA [Concomitant]
     Indication: GASTRIC ULCER HAEMORRHAGE
     Dosage: 300 MG, UNK
     Route: 048
     Dates: start: 20090610
  8. BAKTAR [Concomitant]
     Indication: ANTIFUNGAL PROPHYLAXIS
     Dosage: 2 DF, UNK
     Route: 048
     Dates: start: 20090610
  9. CYTOTEC [Concomitant]
     Indication: GASTRIC ULCER HAEMORRHAGE
     Dosage: 800 UG, UNK
     Route: 048
     Dates: start: 20090806, end: 20091101
  10. PARIET [Concomitant]
     Indication: GASTRIC ULCER HAEMORRHAGE
     Dosage: 20 MG, UNK
     Route: 048
     Dates: start: 20090806
  11. DUROTEP [Concomitant]
     Indication: PAIN
     Dosage: 25 UNK, UNK
     Route: 062
     Dates: start: 20090812, end: 20091012
  12. ZOMETA [Concomitant]
     Indication: MULTIPLE MYELOMA
     Dosage: 4 MG, UNK
     Route: 042
     Dates: start: 20090610

REACTIONS (3)
  - DECREASED APPETITE [None]
  - TUMOUR LYSIS SYNDROME [None]
  - WEIGHT DECREASED [None]
